FAERS Safety Report 10146559 (Version 1)
Quarter: 2014Q2

REPORT INFORMATION
  Report Type: Spontaneous
  Country: US (occurrence: US)
  Receive Date: 20140501
  Receipt Date: 20140501
  Transmission Date: 20141212
  Serious: Yes (Other)
  Sender: FDA-Public Use
  Company Number: US-LUNDBECK-DKLU1099561

PATIENT
  Age: 1 Year
  Sex: Male

DRUGS (1)
  1. SABRIL (FOR ORAL SOLUTION) [Suspect]
     Indication: CONVULSION
     Dates: start: 20140327

REACTIONS (3)
  - Convulsion [Unknown]
  - Drug ineffective [Unknown]
  - Drug dose omission [Unknown]
